FAERS Safety Report 22607132 (Version 1)
Quarter: 2023Q2

REPORT INFORMATION
  Report Type: Other
  Country: TR (occurrence: TR)
  Receive Date: 20230615
  Receipt Date: 20230615
  Transmission Date: 20230722
  Serious: Yes (Hospitalization)
  Sender: FDA-Public Use
  Company Number: TR-BoehringerIngelheim-2023-BI-242270

PATIENT
  Age: 35 Year
  Sex: Male

DRUGS (2)
  1. ALTEPLASE [Suspect]
     Active Substance: ALTEPLASE
     Indication: Septic cerebral embolism
     Route: 042
  2. ALTEPLASE [Suspect]
     Active Substance: ALTEPLASE
     Indication: Ischaemic stroke

REACTIONS (3)
  - Endocarditis [Recovering/Resolving]
  - Haemorrhage intracranial [Recovering/Resolving]
  - Hepatic steatosis [Unknown]
